FAERS Safety Report 7398077-7 (Version None)
Quarter: 2011Q2

REPORT INFORMATION
  Report Type: 
  Country: None (occurrence: None)
  Receive Date: 20110406
  Receipt Date: 20110328
  Transmission Date: 20111010
  Serious: Yes (Death)
  Sender: FDA-Public Use
  Company Number: US-ELI_LILLY_AND_COMPANY-US201103008412

PATIENT
  Sex: Female

DRUGS (2)
  1. GEMZAR [Suspect]
     Indication: ENDOMETRIAL CANCER
     Dosage: 800 MG/M2, UNK
     Route: 042
  2. GEMZAR [Suspect]
     Dosage: 600 MG/M2, UNK

REACTIONS (1)
  - LUNG DISORDER [None]
